FAERS Safety Report 10003838 (Version 1)
Quarter: 2014Q1

REPORT INFORMATION
  Report Type: Spontaneous
  Country: US (occurrence: US)
  Receive Date: 20140312
  Receipt Date: 20140312
  Transmission Date: 20141002
  Serious: No
  Sender: FDA-Public Use
  Company Number: US-ABBVIE-13P-163-1138641-00

PATIENT
  Age: 28 Year
  Sex: Male
  Weight: 79.9 kg

DRUGS (1)
  1. DEPAKOTE [Suspect]
     Indication: BIPOLAR DISORDER
     Dates: start: 20130821, end: 20130821

REACTIONS (14)
  - Dreamy state [Recovered/Resolved]
  - Movement disorder [Recovered/Resolved]
  - Bruxism [Recovered/Resolved]
  - Speech disorder [Recovered/Resolved]
  - Repetitive speech [Recovered/Resolved]
  - Paraesthesia [Recovered/Resolved]
  - Crying [Not Recovered/Not Resolved]
  - Dizziness [Not Recovered/Not Resolved]
  - Speech disorder [Unknown]
  - Dysstasia [Recovered/Resolved]
  - Vomiting [Unknown]
  - Dysarthria [Not Recovered/Not Resolved]
  - Hyperhidrosis [Unknown]
  - Nausea [Unknown]
